FAERS Safety Report 22600439 (Version 2)
Quarter: 2023Q4

REPORT INFORMATION
  Report Type: Report from Study
  Country: ZA (occurrence: ZA)
  Receive Date: 20230614
  Receipt Date: 20231130
  Transmission Date: 20240110
  Serious: Yes (Other)
  Sender: FDA-Public Use
  Company Number: ZA-002147023-NVSC2023ZA130271

PATIENT
  Age: 59 Year
  Sex: Female

DRUGS (1)
  1. SIPONIMOD [Suspect]
     Active Substance: SIPONIMOD
     Indication: Multiple sclerosis
     Dosage: 2 MG, QD
     Route: 048
     Dates: start: 202212

REACTIONS (6)
  - Spinal osteoarthritis [Unknown]
  - Scoliosis [Unknown]
  - Pain [Not Recovered/Not Resolved]
  - Multiple sclerosis [Unknown]
  - Lumbar vertebral fracture [Unknown]
  - Back pain [Unknown]
